FAERS Safety Report 16934002 (Version 7)
Quarter: 2020Q1

REPORT INFORMATION
  Report Type: Report from Study
  Country: None (occurrence: IL)
  Receive Date: 20191018
  Receipt Date: 20200312
  Transmission Date: 20200409
  Serious: Yes (Hospitalization)
  Sender: FDA-Public Use
  Company Number: IL-ABBVIE-19K-082-2966916-00

PATIENT
  Age: 75 Year
  Sex: Male

DRUGS (5)
  1. DUODOPA [Suspect]
     Active Substance: CARBIDOPA\LEVODOPA
     Indication: PARKINSON^S DISEASE
     Route: 050
     Dates: start: 20171126
  2. DUODOPA [Suspect]
     Active Substance: CARBIDOPA\LEVODOPA
     Dosage: MD 6.5ML, CD 5ML/HOUR, CD 4ML/HOUR, ED 2ML
     Route: 050
  3. DOPICAR [Suspect]
     Active Substance: CARBIDOPA\LEVODOPA
     Indication: PRODUCT USED FOR UNKNOWN INDICATION
     Route: 048
  4. DUODOPA [Suspect]
     Active Substance: CARBIDOPA\LEVODOPA
     Dosage: MD 3.5 ML, CD 5 ML/HOUR, CD 3.0 ML/HOUR, ED 2ML?DOSAGE WAS DECREASED
     Route: 050
  5. DUODOPA [Suspect]
     Active Substance: CARBIDOPA\LEVODOPA
     Dosage: MD 6.5 ML, CD 3.5 ML/HOUR, CND 3.0 ML/HOUR, ED 2ML
     Route: 050

REACTIONS (9)
  - Confusional state [Unknown]
  - Dyskinesia [Recovering/Resolving]
  - Therapeutic product effect decreased [Unknown]
  - Wound haemorrhage [Unknown]
  - Hallucination [Unknown]
  - On and off phenomenon [Unknown]
  - Fracture infection [Not Recovered/Not Resolved]
  - Fall [Unknown]
  - Arthritis infective [Not Recovered/Not Resolved]

NARRATIVE: CASE EVENT DATE: 20200305
